FAERS Safety Report 19973230 (Version 1)
Quarter: 2021Q4

REPORT INFORMATION
  Report Type: Spontaneous
  Country: US (occurrence: US)
  Receive Date: 20211018
  Receipt Date: 20211018
  Transmission Date: 20220303
  Serious: No
  Sender: FDA-Public Use
  Company Number: None

PATIENT
  Age: 57 Year
  Sex: Female

DRUGS (1)
  1. HUMIRA [Suspect]
     Active Substance: ADALIMUMAB
     Indication: Rheumatoid arthritis
     Dosage: OTHER
     Route: 058
     Dates: start: 20210815

REACTIONS (3)
  - COVID-19 [None]
  - Urinary tract infection [None]
  - Upper respiratory tract infection [None]

NARRATIVE: CASE EVENT DATE: 20210923
